FAERS Safety Report 8055424-0 (Version None)
Quarter: 2012Q1

REPORT INFORMATION
  Report Type: 
  Country: None (occurrence: None)
  Receive Date: 20120119
  Receipt Date: 20120117
  Transmission Date: 20120608
  Serious: Yes (Hospitalization)
  Sender: FDA-Public Use
  Company Number: JP-PFIZER INC-2011276365

PATIENT
  Age: 26 Year
  Sex: Female
  Weight: 34 kg

DRUGS (9)
  1. MAGNESIUM OXIDE [Concomitant]
     Dosage: 0.5 MG, 3X/DAY
     Route: 048
     Dates: start: 20091202, end: 20091210
  2. PROMAC D [Concomitant]
     Dosage: 1 DF, 2X/DAY
     Route: 048
     Dates: start: 20091126, end: 20091210
  3. ONCOVIN [Interacting]
     Indication: T-CELL TYPE ACUTE LEUKAEMIA
  4. ARMODAFINIL [Suspect]
     Indication: ANTIFUNGAL TREATMENT
     Dosage: 100 MG, 1X/DAY
     Route: 048
     Dates: start: 20091126, end: 20091210
  5. LANSOPRAZOLE [Concomitant]
     Dosage: 1 DF, 1X/DAY
     Route: 048
     Dates: start: 20091126, end: 20091210
  6. DOXORUBICIN HYDROCHLORIDE [Concomitant]
     Indication: B-CELL LYMPHOMA
     Dosage: 60 UNK, 1X/DAY
     Route: 041
     Dates: start: 20091130, end: 20091203
  7. DAI-KENCHU-TO NO.100 [Concomitant]
     Dosage: 1 DF, 3X/DAY
     Route: 048
     Dates: start: 20091202, end: 20091210
  8. ONCOVIN [Interacting]
     Indication: B-CELL LYMPHOMA
     Dosage: 2 MG, 1X/DAY
     Route: 041
     Dates: start: 20091130, end: 20091203
  9. CYCLOPHOSPHAMIDE [Concomitant]
     Indication: B-CELL LYMPHOMA
     Dosage: 360 MG, 2X/DAY
     Route: 041
     Dates: start: 20091130, end: 20091202

REACTIONS (2)
  - DRUG INTERACTION [None]
  - ILEUS PARALYTIC [None]
